FAERS Safety Report 10175862 (Version 1)
Quarter: 2014Q2

REPORT INFORMATION
  Report Type: Spontaneous
  Country: GB (occurrence: GB)
  Receive Date: 20140516
  Receipt Date: 20140516
  Transmission Date: 20141212
  Serious: Yes (Disabling)
  Sender: FDA-Public Use
  Company Number: GB-MERCK-1405GBR006280

PATIENT
  Age: 71 Year
  Sex: Female

DRUGS (11)
  1. ALENDRONATE SODIUM [Suspect]
     Dosage: 70 MG, QW
     Route: 048
  2. CALCICHEW D3 [Concomitant]
     Dosage: UNK
  3. CITALOPRAM [Concomitant]
     Dosage: UNK
  4. CLOPIDOGREL [Concomitant]
     Dosage: UNK
  5. FOLIC ACID [Concomitant]
     Dosage: UNK
  6. GABAPENTIN [Concomitant]
     Dosage: UNK
  7. METHOTREXATE [Concomitant]
     Dosage: UNK
  8. PREDNISOLONE [Concomitant]
     Dosage: UNK
  9. SERETIDE [Concomitant]
     Dosage: UNK, NEBULISER
  10. VENTOLIN (ALBUTEROL SULFATE) [Concomitant]
  11. SPIRIVA [Concomitant]
     Dosage: UNK

REACTIONS (3)
  - Atypical femur fracture [Recovering/Resolving]
  - Pain in extremity [Recovered/Resolved]
  - Groin pain [Recovered/Resolved]
